FAERS Safety Report 14877046 (Version 2)
Quarter: 2018Q2

REPORT INFORMATION
  Report Type: Spontaneous
  Country: US (occurrence: US)
  Receive Date: 20180510
  Receipt Date: 20180620
  Transmission Date: 20180711
  Serious: No
  Sender: FDA-Public Use
  Company Number: US-PFIZER INC-2018192057

PATIENT
  Age: 9 Month
  Sex: Male
  Weight: 7.7 kg

DRUGS (1)
  1. EUCRISA [Suspect]
     Active Substance: CRISABOROLE
     Indication: ECZEMA
     Dosage: UNK
     Dates: start: 20180504, end: 20180506

REACTIONS (6)
  - Application site pruritus [Recovering/Resolving]
  - Drug ineffective [Unknown]
  - Drug administered to patient of inappropriate age [Unknown]
  - Application site rash [Recovering/Resolving]
  - Application site erythema [Recovering/Resolving]
  - Feeling hot [Recovered/Resolved]

NARRATIVE: CASE EVENT DATE: 201805
